FAERS Safety Report 18955544 (Version 1)
Quarter: 2021Q1

REPORT INFORMATION
  Report Type: Spontaneous
  Country: US (occurrence: US)
  Receive Date: 20210301
  Receipt Date: 20210301
  Transmission Date: 20210420
  Serious: No
  Sender: FDA-Public Use
  Company Number: US-BAUSCH-BL-2021-003664

PATIENT
  Age: 51 Year
  Sex: Female

DRUGS (1)
  1. LUMIFY [Suspect]
     Active Substance: BRIMONIDINE TARTRATE
     Indication: OCULAR HYPERAEMIA
     Dosage: 1 DROP IN EACH EYE
     Route: 047
     Dates: start: 202101, end: 202101

REACTIONS (4)
  - Eye irritation [Recovered/Resolved]
  - Ocular discomfort [Recovered/Resolved]
  - Eye pain [Recovered/Resolved]
  - Inappropriate schedule of product administration [Unknown]

NARRATIVE: CASE EVENT DATE: 202101
